FAERS Safety Report 24273517 (Version 1)
Quarter: 2024Q3

REPORT INFORMATION
  Report Type: Spontaneous
  Country: JP (occurrence: JP)
  Receive Date: 20240902
  Receipt Date: 20240902
  Transmission Date: 20241016
  Serious: Yes (Hospitalization, Other)
  Sender: PFIZER
  Company Number: JP-PFIZER INC-PV202400091624

PATIENT
  Age: 69 Year
  Sex: Male
  Weight: 50 kg

DRUGS (17)
  1. ELREXFIO [Suspect]
     Active Substance: ELRANATAMAB-BCMM
     Indication: Plasma cell myeloma
     Dosage: 12 MG ONCE
     Route: 058
     Dates: start: 20240624, end: 20240624
  2. ELREXFIO [Suspect]
     Active Substance: ELRANATAMAB-BCMM
     Dosage: 32 MG ONCE
     Route: 058
     Dates: start: 20240704, end: 20240704
  3. ELREXFIO [Suspect]
     Active Substance: ELRANATAMAB-BCMM
     Indication: Plasma cell myeloma
     Dosage: 76 MG ONCE
     Route: 058
     Dates: start: 20240709, end: 20240709
  4. ACTEMRA [Suspect]
     Active Substance: TOCILIZUMAB
     Indication: Cytokine release syndrome
     Dosage: ACTEMRA FOR INTRAVENOUS INFUSION, 2 VIALS ONCE A WEEK
  5. SULFAMETHOXAZOLE\TRIMETHOPRIM [Concomitant]
     Active Substance: SULFAMETHOXAZOLE\TRIMETHOPRIM
     Indication: Infection prophylaxis
     Dosage: BAKTAR MINI 2 DF, 2X/WEEK
  6. NIFEDIPINE [Concomitant]
     Active Substance: NIFEDIPINE
     Indication: Hypertension
     Dosage: 1 DF ON CONSECUTIVE DAYS, CR TABLET
  7. ZOVIRAX [Concomitant]
     Active Substance: ACYCLOVIR
     Indication: Infection prophylaxis
     Dosage: 1 DF ON CONSECUTIVE DAYS
  8. ESOMEPRAZOLE MAGNESIUM [Concomitant]
     Active Substance: ESOMEPRAZOLE MAGNESIUM
     Indication: Prophylaxis against gastrointestinal ulcer
     Dosage: 1 DF ON CONSECUTIVE DAYS
  9. ENTRESTO [Concomitant]
     Active Substance: SACUBITRIL\VALSARTAN
     Indication: Hypertension
     Dosage: ENTRESTO TABLETS 200 MG, 1 DF ON CONSECUTIVE DAYS
  10. ENTRESTO [Concomitant]
     Active Substance: SACUBITRIL\VALSARTAN
     Dosage: ENTRESTO TABLETS 100 MG, 1 DF ON CONSECUTIVE DAYS
  11. FEBUXOSTAT [Concomitant]
     Active Substance: FEBUXOSTAT
     Indication: Hyperuricaemia
     Dosage: 3 DF ON CONSECUTIVE DAYS
  12. TAMSULOSIN HYDROCHLORIDE [Concomitant]
     Active Substance: TAMSULOSIN HYDROCHLORIDE
     Indication: Benign prostatic hyperplasia
     Dosage: 1 DF ON CONSECUTIVE DAYS
  13. CEFEPIME HYDROCHLORIDE [Concomitant]
     Active Substance: CEFEPIME HYDROCHLORIDE
     Indication: Infection
     Dosage: CEFEPIME DIHYDROCHLORIDE FOR INTRAVENOUS INJECTION, 2 VIAL, 2X/DAY
  14. SOLDEM 3A [Concomitant]
     Active Substance: CARBOHYDRATES\POTASSIUM CHLORIDE\SODIUM CHLORIDE\SODIUM LACTATE
     Indication: Prophylaxis
     Dosage: SOLDEM 3A 500 ML, 1 DF ON CONSECUTIVE DAYS
  15. DEXTROSE\SODIUM CHLORIDE\SODIUM LACTATE [Concomitant]
     Active Substance: DEXTROSE\SODIUM CHLORIDE\SODIUM LACTATE
     Indication: Prophylaxis
     Dosage: SOLDEM 1A 500 ML, 1 DF ON CONSECUTIVE DAYS
  16. LASIX [Concomitant]
     Active Substance: FUROSEMIDE
     Indication: Weight increased
     Dosage: 1 AMPULE WHEN THE WEIGHT INCREASED
  17. ACETAMINOPHEN [Concomitant]
     Active Substance: ACETAMINOPHEN
     Indication: Cytokine release syndrome
     Dosage: ACELIO FOR INTRAVENOUS INJECTION, 1 BAG 2X/WEEK

REACTIONS (3)
  - Coronavirus infection [Recovered/Resolved]
  - Cytokine release syndrome [Recovered/Resolved]
  - Cytokine release syndrome [Recovered/Resolved]

NARRATIVE: CASE EVENT DATE: 20240625
